FAERS Safety Report 4350331-9 (Version None)
Quarter: 2004Q2

REPORT INFORMATION
  Report Type: 
  Country: None (occurrence: None)
  Receive Date: 20040427
  Receipt Date: 20030711
  Transmission Date: 20050107
  Serious: No
  Sender: FDA-Public Use
  Company Number: 000590

PATIENT
  Age: 56 Year
  Sex: Female
  Weight: 73 kg

DRUGS (3)
  1. ZEVALIN [Suspect]
     Indication: NON-HODGKIN'S LYMPHOMA
     Dosage: SEE IMAGE
     Dates: start: 20030611, end: 20030611
  2. ZEVALIN [Suspect]
     Indication: NON-HODGKIN'S LYMPHOMA
     Dosage: SEE IMAGE
     Dates: start: 20030618, end: 20030618
  3. .. [Suspect]

REACTIONS (3)
  - ANOREXIA [None]
  - NAUSEA [None]
  - WEIGHT DECREASED [None]
